FAERS Safety Report 6516531-4 (Version None)
Quarter: 2009Q4

REPORT INFORMATION
  Report Type: 
  Country: None (occurrence: None)
  Receive Date: 20091223
  Receipt Date: 20091215
  Transmission Date: 20100525
  Serious: Yes (Hospitalization, Other)
  Sender: FDA-Public Use
  Company Number: US-AMGEN-US375395

PATIENT
  Sex: Female
  Weight: 90.3 kg

DRUGS (7)
  1. NPLATE [Suspect]
     Indication: IDIOPATHIC THROMBOCYTOPENIC PURPURA
     Route: 058
     Dates: start: 20090219, end: 20091112
  2. CLONIDINE [Concomitant]
     Route: 048
  3. HYDROXYZINE [Concomitant]
     Route: 065
  4. COREG [Concomitant]
     Route: 065
  5. NORVASC [Concomitant]
     Route: 065
  6. OMEPRAZOLE [Concomitant]
     Route: 065
  7. IRON SULFATETHIAMIN COMPOUND TAB [Concomitant]
     Route: 048
     Dates: start: 20090716

REACTIONS (3)
  - DERMATITIS BULLOUS [None]
  - HOSPITALISATION [None]
  - THERAPEUTIC RESPONSE DECREASED [None]
